FAERS Safety Report 8505312-8 (Version None)
Quarter: 2012Q3

REPORT INFORMATION
  Report Type: 
  Country: None (occurrence: None)
  Receive Date: 20120712
  Receipt Date: 20120709
  Transmission Date: 20120928
  Serious: Yes (Hospitalization)
  Sender: FDA-Public Use
  Company Number: FR-PFIZER INC-2012163457

PATIENT
  Age: 75 Year
  Sex: Female

DRUGS (8)
  1. HYDREA [Suspect]
     Indication: ACUTE MYELOID LEUKAEMIA
     Dosage: 1 DF, 1X/DAY
     Route: 048
     Dates: start: 20120222, end: 20120228
  2. TAZOBACTAM [Suspect]
     Indication: PYELONEPHRITIS
     Dosage: 4 G, 3X/DAY
     Route: 042
     Dates: start: 20120222, end: 20120225
  3. AMOXICILLIN [Suspect]
     Indication: PYELONEPHRITIS
     Dosage: 1 G, 4X/DAY
     Route: 042
     Dates: start: 20120226, end: 20120227
  4. LOVENOX [Concomitant]
  5. FENOFIBRATE [Concomitant]
  6. SMECTA ^PFIZER^ [Concomitant]
  7. LERCAPRESS [Concomitant]
  8. ALLOPURINOL [Concomitant]

REACTIONS (2)
  - RASH PUSTULAR [None]
  - RASH ERYTHEMATOUS [None]
